FAERS Safety Report 4655155-0 (Version None)
Quarter: 2005Q2

REPORT INFORMATION
  Report Type: 
  Country: None (occurrence: None)
  Receive Date: 20050505
  Receipt Date: 20050422
  Transmission Date: 20051028
  Serious: Yes (Hospitalization, Other)
  Sender: FDA-Public Use
  Company Number: HQWYE184922APR05

PATIENT
  Age: 73 Year
  Sex: Male

DRUGS (1)
  1. EUPANTOL (PANTOPRAZOLE, INJECTION) [Suspect]
     Dosage: 40 MG 1X PER 1 DAY INTRAVENOUS
     Route: 042
     Dates: start: 20050227, end: 20050315

REACTIONS (2)
  - LEUKOPENIA [None]
  - NEUTROPENIA [None]
